FAERS Safety Report 14439139 (Version 2)
Quarter: 2018Q3

REPORT INFORMATION
  Report Type: Spontaneous
  Country: US (occurrence: US)
  Receive Date: 20180125
  Receipt Date: 20180729
  Transmission Date: 20181010
  Serious: Yes (Hospitalization)
  Sender: FDA-Public Use
  Company Number: US-JNJFOC-20180115335

PATIENT
  Age: 53 Year
  Sex: Female

DRUGS (6)
  1. XARELTO [Suspect]
     Active Substance: RIVAROXABAN
     Indication: THROMBOSIS
     Dosage: 15 AND 20 MG
     Route: 048
     Dates: start: 2016, end: 20160704
  2. XARELTO [Suspect]
     Active Substance: RIVAROXABAN
     Indication: PULMONARY EMBOLISM
     Route: 048
     Dates: start: 20150923, end: 201602
  3. XARELTO [Suspect]
     Active Substance: RIVAROXABAN
     Indication: THROMBOSIS
     Route: 048
     Dates: start: 20150923, end: 201602
  4. XARELTO [Suspect]
     Active Substance: RIVAROXABAN
     Indication: DEEP VEIN THROMBOSIS
     Route: 048
     Dates: start: 20150923, end: 201602
  5. XARELTO [Suspect]
     Active Substance: RIVAROXABAN
     Indication: PULMONARY EMBOLISM
     Dosage: 15 AND 20 MG
     Route: 048
     Dates: start: 2016, end: 20160704
  6. XARELTO [Suspect]
     Active Substance: RIVAROXABAN
     Indication: DEEP VEIN THROMBOSIS
     Dosage: 15 AND 20 MG
     Route: 048
     Dates: start: 2016, end: 20160704

REACTIONS (2)
  - Haematemesis [Recovering/Resolving]
  - Epistaxis [Recovering/Resolving]

NARRATIVE: CASE EVENT DATE: 201601
